FAERS Safety Report 10027682 (Version 1)
Quarter: 2014Q1

REPORT INFORMATION
  Report Type: Spontaneous
  Country: US (occurrence: US)
  Receive Date: 20140321
  Receipt Date: 20140321
  Transmission Date: 20141002
  Serious: Yes (Death)
  Sender: FDA-Public Use
  Company Number: US-MALLINCKRODT-T201401455

PATIENT
  Age: 23 Year
  Sex: Female
  Weight: 108.84 kg

DRUGS (4)
  1. METHADOSE [Suspect]
     Indication: DRUG DEPENDENCE
     Dosage: 40 MG, ONCE A DAY
     Route: 048
     Dates: start: 20110630
  2. METHADOSE [Suspect]
     Dosage: 35 MG, ONCE A DAY
     Route: 048
     Dates: start: 20110629, end: 20110629
  3. METHADOSE [Suspect]
     Dosage: 30 MG, ONCE A DAY
     Route: 048
     Dates: start: 20110628, end: 20110628
  4. PROZAC [Concomitant]

REACTIONS (1)
  - Overdose [Fatal]
